FAERS Safety Report 6087047-7 (Version None)
Quarter: 2009Q1

REPORT INFORMATION
  Report Type: 
  Country: None (occurrence: None)
  Receive Date: 20090219
  Receipt Date: 20090205
  Transmission Date: 20090719
  Serious: Yes (Other)
  Sender: FDA-Public Use
  Company Number: US-1168617

PATIENT
  Age: 21 Day
  Sex: Female

DRUGS (2)
  1. TOBRADEX [Suspect]
     Indication: LACRIMAL DISORDER
     Dosage: (1 GTT OD QID OPHTHALMIC)
     Route: 047
  2. ANTIBIOTICS [Concomitant]

REACTIONS (1)
  - DEVELOPMENTAL GLAUCOMA [None]
